FAERS Safety Report 7976297-8 (Version None)
Quarter: 2011Q4

REPORT INFORMATION
  Report Type: 
  Country: None (occurrence: None)
  Receive Date: 20111213
  Receipt Date: 20111017
  Transmission Date: 20120403
  Serious: No
  Sender: FDA-Public Use
  Company Number: US-AMGEN-USASP2011053611

PATIENT
  Age: 42 Year
  Sex: Female

DRUGS (1)
  1. ENBREL [Suspect]
     Indication: RHEUMATOID ARTHRITIS
     Dosage: 50 MG, QWK
     Dates: start: 20110922

REACTIONS (10)
  - SINUS CONGESTION [None]
  - FATIGUE [None]
  - CHEST PAIN [None]
  - INJECTION SITE INDURATION [None]
  - MALAISE [None]
  - COUGH [None]
  - RESPIRATORY TRACT CONGESTION [None]
  - PAIN [None]
  - INJECTION SITE PRURITUS [None]
  - INJECTION SITE ERYTHEMA [None]
